FAERS Safety Report 9371666 (Version 1)
Quarter: 2013Q2

REPORT INFORMATION
  Report Type: Spontaneous
  Country: US (occurrence: None)
  Receive Date: 20130626
  Receipt Date: 20130626
  Transmission Date: 20140414
  Serious: No
  Sender: FDA-Public Use
  Company Number: None

PATIENT
  Sex: Female

DRUGS (1)
  1. ENBREL 50MG AMGEN [Suspect]
     Dosage: 1 SYRINGE ONCE WEEKLY
     Route: 058
     Dates: start: 20130526

REACTIONS (2)
  - Dizziness [None]
  - Heart rate increased [None]
